FAERS Safety Report 8156480-1 (Version None)
Quarter: 2012Q1

REPORT INFORMATION
  Report Type: 
  Country: None (occurrence: None)
  Receive Date: 20120222
  Receipt Date: 20120220
  Transmission Date: 20120608
  Serious: Yes (Hospitalization, Disabling, Other)
  Sender: FDA-Public Use
  Company Number: US-PFIZER INC-2011158619

PATIENT
  Sex: Female
  Weight: 77.1 kg

DRUGS (4)
  1. PREMPRO [Suspect]
     Indication: HOT FLUSH
     Dosage: 5 MG, DAILY
     Route: 048
     Dates: start: 20000901, end: 20000901
  2. HYDROCHLOROTHIAZIDE [Concomitant]
     Indication: BLOOD PRESSURE ABNORMAL
     Dosage: UNK
  3. GLUCOPHAGE [Concomitant]
     Indication: TYPE 2 DIABETES MELLITUS
     Dosage: 5 MG, UNK
     Dates: start: 19951101
  4. LOPRESSOR [Concomitant]
     Indication: BLOOD PRESSURE ABNORMAL
     Dosage: 2X DAILY

REACTIONS (11)
  - ABASIA [None]
  - MEMORY IMPAIRMENT [None]
  - MOVEMENT DISORDER [None]
  - URINARY INCONTINENCE [None]
  - SPEECH DISORDER [None]
  - FAECAL INCONTINENCE [None]
  - CEREBROVASCULAR ACCIDENT [None]
  - DYSGRAPHIA [None]
  - DIABETES MELLITUS [None]
  - PHYSICAL DISABILITY [None]
  - DRUG INEFFECTIVE [None]
